FAERS Safety Report 18709124 (Version 2)
Quarter: 2021Q1

REPORT INFORMATION
  Report Type: Spontaneous
  Country: GB (occurrence: GB)
  Receive Date: 20210106
  Receipt Date: 20210118
  Transmission Date: 20210419
  Serious: Yes (Death, Other)
  Sender: FDA-Public Use
  Company Number: GB-PERRIGO-20GB018402

PATIENT

DRUGS (17)
  1. CHLORPHENAMINE [Suspect]
     Active Substance: CHLORPHENIRAMINE MALEATE
     Indication: PRODUCT USED FOR UNKNOWN INDICATION
     Dosage: {5 NG/ML FEMORAL BLOOD
  2. PREGABALIN ROSEMONT 20MG/ML ORAL SOLUTION [Suspect]
     Active Substance: PREGABALIN
     Dosage: 10.3 MG/L FEMORAL BLOOD
     Route: 065
  3. DIAZEPAM. [Suspect]
     Active Substance: DIAZEPAM
     Indication: PRODUCT USED FOR UNKNOWN INDICATION
     Dosage: 107 NANOGRAM PER MILLLIITER
  4. MORPHINE [Suspect]
     Active Substance: MORPHINE
     Indication: PRODUCT USED FOR UNKNOWN INDICATION
     Dosage: 273 NANOGRAM PER MILLLIITER
  5. HYDROCODONE [Suspect]
     Active Substance: HYDROCODONE
     Indication: PRODUCT USED FOR UNKNOWN INDICATION
     Dosage: UNK(96 NG/ML FEMORAL BLOOD)
  6. AMITRIPTYLINE [Suspect]
     Active Substance: AMITRIPTYLINE
     Indication: PRODUCT USED FOR UNKNOWN INDICATION
     Dosage: UNK(310 NG/ML FEMORAL BLOOD)
  7. AMFETAMINE SULFATE [Suspect]
     Active Substance: AMPHETAMINE SULFATE
     Dosage: 859 NANOGRAM PER MILLLIITER
  8. PARACETAMOL [Suspect]
     Active Substance: ACETAMINOPHEN
     Indication: PRODUCT USED FOR UNKNOWN INDICATION
     Dosage: {5000 NG/ML FEMORAL BLOOD
     Route: 065
  9. DIAZEPAM. [Suspect]
     Active Substance: DIAZEPAM
     Dosage: 131 NANOGRAM PER MILLLIITER
  10. ETIZOLAM [Suspect]
     Active Substance: ETIZOLAM
     Indication: PRODUCT USED FOR UNKNOWN INDICATION
     Dosage: 4 NANOGRAM PER MILLLIITER
     Route: 065
  11. AMFETAMINE SULFATE [Suspect]
     Active Substance: AMPHETAMINE SULFATE
     Indication: PRODUCT USED FOR UNKNOWN INDICATION
     Route: 065
  12. GABAPENTIN 50MG/ML PL00147/0155 [Suspect]
     Active Substance: GABAPENTIN
     Indication: PRODUCT USED FOR UNKNOWN INDICATION
     Dosage: 2.6 MG/L FEMORAL BLOOD
  13. PREGABALIN ROSEMONT 20MG/ML ORAL SOLUTION [Suspect]
     Active Substance: PREGABALIN
     Indication: PRODUCT USED FOR UNKNOWN INDICATION
     Dosage: UNK(10,200 NG/ML FEMORAL BLOOD)
     Route: 065
  14. DHC [Suspect]
     Active Substance: DIHYDROCODEINE BITARTRATE
     Indication: PRODUCT USED FOR UNKNOWN INDICATION
     Dosage: UNK(6413 NG/ML FEMORAL BLOOD)
  15. DIHYDROCODEINE [Suspect]
     Active Substance: DIHYDROCODEINE
     Indication: PRODUCT USED FOR UNKNOWN INDICATION
     Dosage: UNK
  16. ETIZOLAM [Suspect]
     Active Substance: ETIZOLAM
     Dosage: 18 NANOGRAM PER MILLLIITER
     Route: 065
  17. MORPHINE [Suspect]
     Active Substance: MORPHINE
     Dosage: 34 NANOGRAM PER MILLLIITER

REACTIONS (2)
  - Toxicity to various agents [Fatal]
  - Drug abuse [Unknown]
